FAERS Safety Report 8362941-2 (Version None)
Quarter: 2012Q2

REPORT INFORMATION
  Report Type: 
  Country: None (occurrence: None)
  Receive Date: 20120514
  Receipt Date: 20120514
  Transmission Date: 20120825
  Serious: No
  Sender: FDA-Public Use
  Company Number: None

PATIENT
  Age: 59 Year
  Sex: Female
  Weight: 90.7194 kg

DRUGS (1)
  1. LAMICTAL [Suspect]
     Indication: DEPRESSION
     Dates: start: 20111015, end: 20111228

REACTIONS (4)
  - MENTAL IMPAIRMENT [None]
  - MEMORY IMPAIRMENT [None]
  - MUSCLE TWITCHING [None]
  - SPEECH DISORDER [None]
